FAERS Safety Report 8966226 (Version 1)
Quarter: 2012Q4

REPORT INFORMATION
  Report Type: 
  Country: CA (occurrence: CA)
  Receive Date: 20121217
  Receipt Date: 20121217
  Transmission Date: 20130627
  Serious: Yes (Hospitalization, Other)
  Sender: FDA-Public Use
  Company Number: CA-BRISTOL-MYERS SQUIBB COMPANY-16659849

PATIENT
  Age: 61 Year
  Sex: Male

DRUGS (13)
  1. SPRYCEL [Suspect]
     Indication: ACUTE LYMPHOCYTIC LEUKAEMIA
     Dosage: Dose:140mg,70mg BID
hold on until 06Sep12
reduced to 70mg/d
11May12-7nov12
23nov12-ong:70mg BID
     Route: 048
     Dates: start: 20120511
  2. MORPHINE [Concomitant]
  3. BENADRYL [Concomitant]
  4. TYLENOL [Concomitant]
  5. PANTOLOC [Concomitant]
  6. FLOMAX [Concomitant]
  7. PROSCAR [Concomitant]
  8. CLONAZEPAM [Concomitant]
     Dosage: at bedtime
  9. TRAZODONE HCL [Concomitant]
  10. WELLBUTRIN [Concomitant]
  11. DULCOLAX [Concomitant]
  12. STEMETIL [Concomitant]
  13. NYSTATIN [Concomitant]

REACTIONS (7)
  - Malignant neoplasm progression [Unknown]
  - Patella fracture [Unknown]
  - Clostridium difficile infection [Recovered/Resolved]
  - Lung infection [Unknown]
  - Pulmonary oedema [Unknown]
  - Rash [Not Recovered/Not Resolved]
  - Oral candidiasis [Recovering/Resolving]
